FAERS Safety Report 7339163-7 (Version None)
Quarter: 2011Q1

REPORT INFORMATION
  Report Type: 
  Country: None (occurrence: None)
  Receive Date: 20110308
  Receipt Date: 20110223
  Transmission Date: 20110831
  Serious: Yes (Hospitalization)
  Sender: FDA-Public Use
  Company Number: US-ACTELION-A-NJ2010-34716

PATIENT

DRUGS (7)
  1. TRACLEER [Suspect]
     Indication: PULMONARY ARTERIAL HYPERTENSION
     Dosage: UNK
     Route: 048
     Dates: start: 20080411
  2. PACERONE [Concomitant]
  3. REVATIO [Concomitant]
  4. LASIX [Concomitant]
  5. FLOLAN [Concomitant]
  6. CALCIUM CHANNEL BLOCKERS [Concomitant]
  7. COUMADIN [Concomitant]

REACTIONS (15)
  - HEPATOMEGALY [None]
  - ABDOMINAL DISTENSION [None]
  - MULTIPLE SCLEROSIS RELAPSE [None]
  - RIGHT VENTRICULAR FAILURE [None]
  - DEVICE LEAKAGE [None]
  - PULMONARY ARTERIAL HYPERTENSION [None]
  - WEIGHT INCREASED [None]
  - PAIN IN EXTREMITY [None]
  - H1N1 INFLUENZA [None]
  - PNEUMONIA [None]
  - ASCITES [None]
  - NEUROLOGICAL SYMPTOM [None]
  - PYREXIA [None]
  - DISEASE PROGRESSION [None]
  - CONDITION AGGRAVATED [None]
